FAERS Safety Report 6770436-2 (Version None)
Quarter: 2010Q2

REPORT INFORMATION
  Report Type: 
  Country: None (occurrence: None)
  Receive Date: 20100615
  Receipt Date: 20100603
  Transmission Date: 20101027
  Serious: Yes (Other)
  Sender: FDA-Public Use
  Company Number: KR-PFIZER INC-2010068250

PATIENT
  Sex: Male

DRUGS (3)
  1. DITRUSITOL [Suspect]
     Indication: URINARY TRACT DISORDER
     Dosage: 2.5 MG, UNK
     Route: 048
     Dates: start: 20090501
  2. DITRUSITOL [Suspect]
     Indication: PROSTATIC DISORDER
  3. CARDURA [Suspect]
     Indication: BENIGN PROSTATIC HYPERPLASIA
     Dosage: UNK
     Route: 048

REACTIONS (7)
  - ABDOMINAL DISCOMFORT [None]
  - DRUG INEFFECTIVE [None]
  - DRY MOUTH [None]
  - NOCTURIA [None]
  - POLLAKIURIA [None]
  - URINARY TRACT DISORDER [None]
  - URINARY TRACT INFECTION [None]
